FAERS Safety Report 8550900 (Version 2)
Quarter: 2015Q2

REPORT INFORMATION
  Report Type: Spontaneous
  Country: GR (occurrence: GR)
  Receive Date: 20120508
  Receipt Date: 20150522
  Transmission Date: 20150821
  Serious: Yes (Other)
  Sender: FDA-Public Use
  Company Number: PHHY2012GR037431

PATIENT
  Age: 58 Year
  Sex: Male

DRUGS (8)
  1. BEVACIZUMAB [Concomitant]
     Active Substance: BEVACIZUMAB
     Indication: PRODUCT USED FOR UNKNOWN INDICATION
     Route: 065
  2. SANDOSTATIN LAR DEPOT [Suspect]
     Active Substance: OCTREOTIDE ACETATE
     Dosage: 30 MG ONCE IN 21 DAYS
     Route: 065
  3. SANDOSTATIN LAR DEPOT [Suspect]
     Active Substance: OCTREOTIDE ACETATE
     Dosage: 60 MG ONCE IN 14 DAYS
     Route: 065
  4. EVEROLIMUS [Concomitant]
     Active Substance: EVEROLIMUS
     Indication: PRODUCT USED FOR UNKNOWN INDICATION
     Route: 065
  5. SANDOSTATIN LAR DEPOT [Suspect]
     Active Substance: OCTREOTIDE ACETATE
     Indication: PANCREATIC NEUROENDOCRINE TUMOUR
     Dosage: 20 MG IN EVERY 28 DAYS
     Route: 065
  6. SANDOSTATIN LAR DEPOT [Suspect]
     Active Substance: OCTREOTIDE ACETATE
     Dosage: 30 MG ONCE IN EVERY 14 DAYS
     Route: 065
  7. INTERFERON ALFA NOS [Concomitant]
     Active Substance: INTERFERON ALFA-2A OR INTERFERON ALFA-2B
     Indication: MALIGNANT NEOPLASM PROGRESSION
     Dosage: 50-80 UG WEEKLY
     Route: 065
  8. SANDOSTATIN LAR DEPOT [Suspect]
     Active Substance: OCTREOTIDE ACETATE
     Dosage: 60 MG ONCE IN EVERY 14 DAYS
     Route: 065

REACTIONS (14)
  - Hypercalcaemia [Recovering/Resolving]
  - Calcium ionised increased [Unknown]
  - Parathyroid hormone-related protein increased [Unknown]
  - Bone lesion [Recovering/Resolving]
  - Diabetes mellitus [Recovering/Resolving]
  - Myopathy [Not Recovered/Not Resolved]
  - Depression [Unknown]
  - Abdominal pain [Unknown]
  - Condition aggravated [Unknown]
  - Blood parathyroid hormone decreased [Unknown]
  - Muscular weakness [Unknown]
  - Brown tumour [Unknown]
  - Malignant neoplasm progression [Unknown]
  - Hypophosphataemia [Unknown]
